FAERS Safety Report 11574408 (Version 1)
Quarter: 2015Q3

REPORT INFORMATION
  Report Type: Report from Study
  Country: US (occurrence: US)
  Receive Date: 20150930
  Receipt Date: 20150930
  Transmission Date: 20151125
  Serious: Yes (Other)
  Sender: FDA-Public Use
  Company Number: US-AMGEN-USASL2015099008

PATIENT
  Sex: Female

DRUGS (2)
  1. ENBREL [Suspect]
     Active Substance: ETANERCEPT
     Indication: RHEUMATOID ARTHRITIS
     Dosage: 50 MG, QWK
     Route: 065
     Dates: start: 200408
  2. ENBREL [Suspect]
     Active Substance: ETANERCEPT
     Indication: PSORIASIS

REACTIONS (10)
  - Disease recurrence [Unknown]
  - Fatigue [Unknown]
  - Drug effect decreased [Unknown]
  - Infection [Unknown]
  - Injection site haemorrhage [Unknown]
  - Surgery [Unknown]
  - Dental care [Unknown]
  - Arthralgia [Unknown]
  - Pneumonia [Unknown]
  - Impaired healing [Unknown]
